FAERS Safety Report 7302589-1 (Version None)
Quarter: 2011Q1

REPORT INFORMATION
  Report Type: 
  Country: None (occurrence: None)
  Receive Date: 20110218
  Receipt Date: 20110207
  Transmission Date: 20110831
  Serious: Yes (Other)
  Sender: FDA-Public Use
  Company Number: US-CELGENEUS-163-21880-10070947

PATIENT
  Sex: Female

DRUGS (19)
  1. REVLIMID [Suspect]
     Route: 048
     Dates: start: 20100701
  2. PRILOSEC [Concomitant]
     Route: 048
     Dates: start: 20100726
  3. PROAIR HFA [Concomitant]
     Route: 055
     Dates: start: 20100927
  4. VITAMIN D [Concomitant]
     Dosage: 1000 UNITS, 1 TABLET
     Route: 048
     Dates: start: 20100608
  5. ATROVENT [Concomitant]
     Route: 045
     Dates: start: 20100927
  6. PHENERGAN [Concomitant]
     Route: 048
     Dates: start: 20110110
  7. REVLIMID [Suspect]
     Indication: MULTIPLE MYELOMA
     Route: 048
     Dates: start: 20100624
  8. SYMBICORT [Concomitant]
     Dosage: 160/4.5MCG, 2 SPRAYS
     Route: 055
     Dates: start: 20100927
  9. VITAMIN D [Concomitant]
     Route: 048
     Dates: start: 20100614
  10. DILAUDID [Concomitant]
     Route: 048
     Dates: start: 20101011
  11. REVLIMID [Suspect]
     Route: 048
     Dates: start: 20101201
  12. QVAR 40 [Concomitant]
     Indication: ASTHMA
     Dosage: 2 PUFFS
     Route: 055
     Dates: start: 20100927
  13. DEXAMETHASONE [Concomitant]
     Route: 048
     Dates: start: 20100610
  14. FLUTICASONE PROPIONATE [Concomitant]
     Dosage: 2 SPRAYS
     Route: 045
     Dates: start: 20100927
  15. ALBUTEROL [Concomitant]
     Indication: ASTHMA
     Dosage: 1-2 PUFFS
     Route: 055
     Dates: start: 20100927
  16. LIDODERM [Concomitant]
     Indication: PAIN
     Dosage: 1 PATCH
     Route: 061
     Dates: start: 20100927
  17. ACYCLOVIR [Concomitant]
     Indication: ANTIVIRAL PROPHYLAXIS
     Route: 048
     Dates: start: 20100610
  18. BUDESONIDE/FORMOTEROL [Concomitant]
     Dosage: 160/4.5MCG/2 SPRAYS
     Route: 055
     Dates: start: 20100927
  19. TEGRETOL [Concomitant]
     Route: 048
     Dates: start: 20100809

REACTIONS (1)
  - BLOOD HUMAN CHORIONIC GONADOTROPIN INCREASED [None]
